FAERS Safety Report 21733625 (Version 3)
Quarter: 2023Q2

REPORT INFORMATION
  Report Type: Report from Study
  Country: US (occurrence: US)
  Receive Date: 20221215
  Receipt Date: 20230608
  Transmission Date: 20230722
  Serious: No
  Sender: FDA-Public Use
  Company Number: US-002147023-NVSC2022US290736

PATIENT
  Age: 74 Year
  Sex: Female
  Weight: 64.5 kg

DRUGS (2)
  1. KISQALI [Suspect]
     Active Substance: RIBOCICLIB
     Indication: Metastases to breast
     Dosage: UNK
     Route: 065
  2. KISQALI [Suspect]
     Active Substance: RIBOCICLIB
     Dosage: 400 MG, QD
     Route: 048
     Dates: start: 20220605

REACTIONS (2)
  - COVID-19 [Recovered/Resolved]
  - Cerebral congestion [Unknown]

NARRATIVE: CASE EVENT DATE: 20221129
